FAERS Safety Report 9433828 (Version 5)
Quarter: 2013Q4

REPORT INFORMATION
  Report Type: Report from Study
  Country: BR (occurrence: BR)
  Receive Date: 20130731
  Receipt Date: 20131210
  Transmission Date: 20140711
  Serious: Yes (Life-Threatening, Hospitalization)
  Sender: FDA-Public Use
  Company Number: PHHY2013BR081326

PATIENT
  Age: 78 Year
  Sex: Female
  Weight: 58 kg

DRUGS (8)
  1. EXELON PATCH [Suspect]
     Dosage: 4.6 MG, DAILY (PATCH 5 CM2)
     Route: 062
     Dates: start: 201301, end: 201301
  2. EXELON PATCH [Suspect]
     Dosage: 4 DF, DAILY (PATCH 5 M2)
     Route: 062
  3. EXELON PATCH [Suspect]
     Dosage: 9.5 MG, DAILY (PATCH10 CM2)
     Route: 062
     Dates: start: 201305
  4. PURAN T4 [Concomitant]
     Indication: HYPOTHYROIDISM
     Dosage: 1 DF, DAILY
     Route: 048
     Dates: start: 1994
  5. COLECALCIFEROL [Concomitant]
     Indication: OSTEOPENIA
     Dosage: 1 DF, DAILY
     Route: 048
  6. AAS [Concomitant]
     Indication: VEIN DISORDER
     Dosage: 1 DF, DAILY
     Route: 048
  7. OMEPRAZOLE [Concomitant]
     Indication: GASTRIC DISORDER
     Dosage: 1 DF, DAILY
     Route: 048
  8. TRAVATAN [Concomitant]
     Indication: OCULAR HYPERTENSION
     Dosage: 1 DF, DAILY

REACTIONS (8)
  - Apparent death [Unknown]
  - General physical condition abnormal [Recovered/Resolved]
  - Vomiting [Recovered/Resolved]
  - Decreased appetite [Recovered/Resolved]
  - Blood pressure increased [Recovered/Resolved]
  - Expired drug administered [Unknown]
  - Drug administration error [Recovered/Resolved]
  - Drug ineffective [Not Recovered/Not Resolved]
